FAERS Safety Report 6249908-5 (Version None)
Quarter: 2009Q2

REPORT INFORMATION
  Report Type: 
  Country: None (occurrence: None)
  Receive Date: 20090629
  Receipt Date: 20090619
  Transmission Date: 20091009
  Serious: Yes (Hospitalization, Other)
  Sender: FDA-Public Use
  Company Number: US-BAXTER-2009BH010481

PATIENT
  Age: 4 Year
  Sex: Male
  Weight: 14 kg

DRUGS (12)
  1. IFOSFAMIDE [Suspect]
     Indication: CHROMOSOME ANALYSIS ABNORMAL
     Route: 042
     Dates: start: 20090519, end: 20090520
  2. IFOSFAMIDE [Suspect]
     Indication: ACUTE LYMPHOCYTIC LEUKAEMIA
     Route: 042
     Dates: start: 20090519, end: 20090520
  3. ETOPOSIDE [Suspect]
     Indication: CHROMOSOME ANALYSIS ABNORMAL
     Route: 042
     Dates: start: 20090519, end: 20090520
  4. ETOPOSIDE [Suspect]
     Indication: ACUTE LYMPHOCYTIC LEUKAEMIA
     Route: 042
     Dates: start: 20090519, end: 20090520
  5. SPRYCEL [Suspect]
     Indication: CHROMOSOME ANALYSIS ABNORMAL
     Route: 048
     Dates: start: 20090519, end: 20090520
  6. SPRYCEL [Suspect]
     Indication: ACUTE LYMPHOCYTIC LEUKAEMIA
     Route: 048
     Dates: start: 20090519, end: 20090520
  7. CYTARABINE [Suspect]
     Indication: CHROMOSOME ANALYSIS ABNORMAL
     Route: 065
     Dates: start: 20090519, end: 20090519
  8. CYTARABINE [Suspect]
     Indication: ACUTE LYMPHOCYTIC LEUKAEMIA
     Route: 065
     Dates: start: 20090519, end: 20090519
  9. HYDROCORTISONE [Suspect]
     Indication: CHROMOSOME ANALYSIS ABNORMAL
     Route: 065
     Dates: start: 20090519, end: 20090519
  10. HYDROCORTISONE [Suspect]
     Indication: ACUTE LYMPHOCYTIC LEUKAEMIA
     Route: 065
     Dates: start: 20090519, end: 20090519
  11. METHOTREXATE [Suspect]
     Indication: CHROMOSOME ANALYSIS ABNORMAL
     Route: 065
     Dates: start: 20090519, end: 20090519
  12. METHOTREXATE [Suspect]
     Indication: ACUTE LYMPHOCYTIC LEUKAEMIA
     Route: 065
     Dates: start: 20090519, end: 20090519

REACTIONS (4)
  - ASPARTATE AMINOTRANSFERASE INCREASED [None]
  - HYPOKALAEMIA [None]
  - HYPONATRAEMIA [None]
  - NEUROTOXICITY [None]
